FAERS Safety Report 23949013 (Version 1)
Quarter: 2024Q2

REPORT INFORMATION
  Report Type: Spontaneous
  Country: PY (occurrence: PY)
  Receive Date: 20240607
  Receipt Date: 20240607
  Transmission Date: 20240715
  Serious: Yes (Hospitalization)
  Sender: FDA-Public Use
  Company Number: PY-ROCHE-3467893

PATIENT
  Age: 35 Year
  Sex: Female
  Weight: 56 kg

DRUGS (5)
  1. MIRCERA [Suspect]
     Active Substance: METHOXY POLYETHYLENE GLYCOL-EPOETIN BETA
     Indication: Nephrogenic anaemia
     Dosage: 100 MCG/0,3ML
     Route: 058
     Dates: start: 20230912
  2. MIRCERA [Suspect]
     Active Substance: METHOXY POLYETHYLENE GLYCOL-EPOETIN BETA
     Dosage: 100 MCG/0,3ML
     Route: 058
     Dates: start: 20231112
  3. LOSARTAN [Concomitant]
     Active Substance: LOSARTAN
     Dosage: FREQUECY WAS NOT REPORTED
     Route: 048
  4. FOLIC ACID [Concomitant]
     Active Substance: FOLIC ACID
     Dosage: FREQUECY WAS NOT REPORTED
     Route: 048
  5. OMEPRAZOLE [Concomitant]
     Active Substance: DONEPEZIL HYDROCHLORIDE\OMEPRAZOLE\OMEPRAZOLE MAGNESIUM
     Dosage: FREQUECY WAS NOT REPORTED
     Route: 048

REACTIONS (11)
  - Uterine haemorrhage [Unknown]
  - Red blood cell count decreased [Unknown]
  - Mean cell haemoglobin concentration decreased [Unknown]
  - Blood cholesterol increased [Unknown]
  - Blood albumin decreased [Unknown]
  - Blood creatinine increased [Unknown]
  - Blood urea increased [Unknown]
  - Basophil count decreased [Unknown]
  - Basophil count decreased [Unknown]
  - Haemoglobin decreased [Unknown]
  - Haematocrit decreased [Unknown]
